FAERS Safety Report 5406001-9 (Version None)
Quarter: 2007Q3

REPORT INFORMATION
  Report Type: 
  Country: None (occurrence: None)
  Receive Date: 20070802
  Receipt Date: 20070714
  Transmission Date: 20080115
  Serious: Yes (Life-Threatening)
  Sender: FDA-Public Use
  Company Number: ENT 2007-0104

PATIENT
  Age: 77 Year
  Sex: Female

DRUGS (2)
  1. COMTAN [Suspect]
     Indication: PARKINSON'S DISEASE
     Dosage: 200 MG ORAL
     Route: 048
     Dates: start: 20070614, end: 20070628
  2. MENESIT [Concomitant]

REACTIONS (1)
  - INTERSTITIAL LUNG DISEASE [None]
